FAERS Safety Report 16899220 (Version 1)
Quarter: 2019Q4

REPORT INFORMATION
  Report Type: Report from Study
  Country: US (occurrence: US)
  Receive Date: 20191009
  Receipt Date: 20191009
  Transmission Date: 20200122
  Serious: Yes (Death)
  Sender: FDA-Public Use
  Company Number: US-PFIZER INC-2019432466

PATIENT
  Age: 66 Year
  Sex: Female

DRUGS (4)
  1. BLEOMYCIN SULFATE [Suspect]
     Active Substance: BLEOMYCIN SULFATE
     Indication: HODGKIN^S DISEASE
     Dosage: 10 U/M2, ON DAYS 1 AND 15 OF EACH CYCLE
     Route: 042
  2. VINBLASTINE [Concomitant]
     Active Substance: VINBLASTINE
     Indication: HODGKIN^S DISEASE
     Dosage: 6 MG/M2, CYCLIC (ON DAYS 1 AND 15 OF EACH CYCLE)
     Route: 042
  3. DACARBAZINE. [Concomitant]
     Active Substance: DACARBAZINE
     Indication: HODGKIN^S DISEASE
     Dosage: 375 MG/M2, CYCLIC (ON DAYS 1 AND 15 OF EACH CYCLE)
     Route: 042
  4. DOXORUBICIN [Concomitant]
     Active Substance: DOXORUBICIN
     Indication: HODGKIN^S DISEASE
     Dosage: 25 MG/M2, CYCLIC (ON DAYS 1 AND 15 OF EACH CYCLE)
     Route: 042

REACTIONS (2)
  - Respiratory distress [Fatal]
  - Pneumonitis [Fatal]
